FAERS Safety Report 19666949 (Version 1)
Quarter: 2021Q3

REPORT INFORMATION
  Report Type: Spontaneous
  Country: GB (occurrence: GB)
  Receive Date: 20210806
  Receipt Date: 20210806
  Transmission Date: 20211014
  Serious: Yes (Other)
  Sender: FDA-Public Use
  Company Number: GB-TEVA-2021-GB-1938234

PATIENT
  Sex: Female

DRUGS (5)
  1. EVEROLIMUS. [Suspect]
     Active Substance: EVEROLIMUS
     Indication: PRODUCT USED FOR UNKNOWN INDICATION
     Dosage: UNK
     Route: 065
  2. GOSERELIN [Concomitant]
     Active Substance: GOSERELIN
     Indication: ENDOMETRIAL CANCER METASTATIC
     Dosage: UNK
     Route: 065
     Dates: start: 20160819
  3. LETROZOLE. [Suspect]
     Active Substance: LETROZOLE
     Indication: INVASIVE LOBULAR BREAST CARCINOMA
     Dosage: UNK
     Route: 065
     Dates: start: 20160819
  4. EXEMESTANE. [Concomitant]
     Active Substance: EXEMESTANE
     Indication: PRODUCT USED FOR UNKNOWN INDICATION
     Dosage: UNK
     Route: 065
  5. FULVESTRANT. [Suspect]
     Active Substance: FULVESTRANT
     Indication: BREAST CANCER METASTATIC
     Dosage: UNK
     Route: 065
     Dates: start: 202103

REACTIONS (7)
  - Bone disorder [Unknown]
  - Malignant neoplasm progression [Unknown]
  - Tumour marker increased [Unknown]
  - Bone lesion [Unknown]
  - Ascites [Recovered/Resolved]
  - Invasive lobular breast carcinoma [Unknown]
  - Uterine mass [Unknown]

NARRATIVE: CASE EVENT DATE: 201711
